FAERS Safety Report 5779481-7 (Version None)
Quarter: 2008Q2

REPORT INFORMATION
  Report Type: 
  Country: None (occurrence: None)
  Receive Date: 20080619
  Receipt Date: 20080609
  Transmission Date: 20081010
  Serious: Yes (Other)
  Sender: FDA-Public Use
  Company Number: CA-ELI_LILLY_AND_COMPANY-CA200804000184

PATIENT
  Sex: Female

DRUGS (1)
  1. EVISTA [Suspect]
     Dosage: 60 MG, DAILY (1/D)
     Dates: start: 20070301

REACTIONS (4)
  - ALLERGY TO CHEMICALS [None]
  - DRY EYE [None]
  - MACULAR DEGENERATION [None]
  - OCULAR HYPERAEMIA [None]
